FAERS Safety Report 17690105 (Version 2)
Quarter: 2020Q3

REPORT INFORMATION
  Report Type: Spontaneous
  Country: IT (occurrence: IT)
  Receive Date: 20200421
  Receipt Date: 20200702
  Transmission Date: 20201102
  Serious: Yes (Hospitalization)
  Sender: FDA-Public Use
  Company Number: NVSC2020IT105588

PATIENT
  Age: 74 Year
  Sex: Female

DRUGS (4)
  1. NEBIVOLOL. [Concomitant]
     Active Substance: NEBIVOLOL
     Indication: HYPERTENSION
     Dosage: UNK
     Route: 065
  2. PANTOPRAZOLE [Suspect]
     Active Substance: PANTOPRAZOLE
     Indication: PRODUCT USED FOR UNKNOWN INDICATION
     Dosage: UNK
     Route: 065
  3. LEVETIRACETAM. [Suspect]
     Active Substance: LEVETIRACETAM
     Indication: PARTIAL SEIZURES WITH SECONDARY GENERALISATION
     Dosage: 1500 MG, QD
     Route: 065
  4. SIMVASTATIN. [Concomitant]
     Active Substance: SIMVASTATIN
     Indication: HYPERTRIGLYCERIDAEMIA
     Dosage: UNK
     Route: 065

REACTIONS (12)
  - Hypokalaemia [Recovered/Resolved]
  - Dysmetria [Recovered/Resolved]
  - Hypomagnesaemia [Recovered/Resolved]
  - Irritability [Recovered/Resolved]
  - Diarrhoea [Recovered/Resolved]
  - Cerebellar ataxia [Recovered/Resolved]
  - Gait disturbance [Recovered/Resolved]
  - Nystagmus [Recovered/Resolved]
  - Ataxia [Recovering/Resolving]
  - Dysarthria [Recovered/Resolved]
  - Gait inability [Recovering/Resolving]
  - Hypocalcaemia [Recovered/Resolved]
